FAERS Safety Report 18498708 (Version 1)
Quarter: 2020Q4

REPORT INFORMATION
  Report Type: Report from Study
  Country: US (occurrence: US)
  Receive Date: 20201112
  Receipt Date: 20201112
  Transmission Date: 20210114
  Serious: Yes (Other)
  Sender: FDA-Public Use
  Company Number: US-BIOGEN-2020BI00943082

PATIENT
  Sex: Female
  Weight: 81.72 kg

DRUGS (1)
  1. VUMERITY [Suspect]
     Active Substance: DIROXIMEL FUMARATE
     Indication: MULTIPLE SCLEROSIS
     Route: 065
     Dates: start: 20201024

REACTIONS (14)
  - Migraine [Unknown]
  - Headache [Not Recovered/Not Resolved]
  - Brain injury [Unknown]
  - Weight loss poor [Unknown]
  - Weight increased [Unknown]
  - Irritability [Unknown]
  - Stress [Unknown]
  - Seizure [Unknown]
  - Fear [Unknown]
  - Confusional state [Unknown]
  - Road traffic accident [Recovered/Resolved]
  - Anxiety [Unknown]
  - Ulcer [Unknown]
  - Heart valve calcification [Unknown]
